FAERS Safety Report 4353710-9 (Version None)
Quarter: 2004Q2

REPORT INFORMATION
  Report Type: 
  Country: None (occurrence: None)
  Receive Date: 20040430
  Receipt Date: 20040420
  Transmission Date: 20050107
  Serious: Yes (Death)
  Sender: FDA-Public Use
  Company Number: US-JNJFOC-20040404704

PATIENT

DRUGS (1)
  1. REMICADE [Suspect]
     Indication: MYELODYSPLASTIC SYNDROME
     Dosage: 5 MG/KG OR 10 MG/KG 1 IN 4 WEEK (FOR FOUR CYCLES)

REACTIONS (2)
  - CARDIAC ARREST [None]
  - PULMONARY MASS [None]
